FAERS Safety Report 14746284 (Version 2)
Quarter: 2018Q2

REPORT INFORMATION
  Report Type: Report from Study
  Country: JP (occurrence: JP)
  Receive Date: 20180411
  Receipt Date: 20180509
  Transmission Date: 20180711
  Serious: Yes (Other)
  Sender: FDA-Public Use
  Company Number: JP-ACTELION-A-CH2018-170211

PATIENT
  Age: 52 Year
  Sex: Female

DRUGS (19)
  1. FEXOFENADINE [Concomitant]
     Active Substance: FEXOFENADINE\FEXOFENADINE HYDROCHLORIDE
  2. URSO [Concomitant]
     Active Substance: URSODIOL
  3. OPSUMIT [Suspect]
     Active Substance: MACITENTAN
     Indication: PULMONARY ARTERIAL HYPERTENSION
     Dosage: 10 MG, QD
     Route: 048
     Dates: start: 20171110, end: 20180117
  4. NEXIUM [Concomitant]
     Active Substance: ESOMEPRAZOLE MAGNESIUM
  5. CARVEDILOL. [Concomitant]
     Active Substance: CARVEDILOL
  6. PROCYLIN [Concomitant]
     Active Substance: BERAPROST SODIUM
  7. TRACLEER [Concomitant]
     Active Substance: BOSENTAN
  8. ADCIRCA [Concomitant]
     Active Substance: TADALAFIL
  9. SPIRONOLACTONE. [Concomitant]
     Active Substance: SPIRONOLACTONE
  10. PIMOBENDAN [Concomitant]
     Active Substance: PIMOBENDAN
  11. FERROSTEC [Concomitant]
     Active Substance: SODIUM FERROUS CITRATE
  12. FEBURIC [Concomitant]
     Active Substance: FEBUXOSTAT
  13. OXYGEN. [Concomitant]
     Active Substance: OXYGEN
  14. REVATIO [Concomitant]
     Active Substance: SILDENAFIL CITRATE
  15. SAMSCA [Concomitant]
     Active Substance: TOLVAPTAN
  16. FUROSEMIDE. [Concomitant]
     Active Substance: FUROSEMIDE
  17. AZOSEMIDE [Concomitant]
     Active Substance: AZOSEMIDE
  18. TRACLEER [Concomitant]
     Active Substance: BOSENTAN
  19. MIYA-BM [Concomitant]
     Active Substance: CLOSTRIDIUM BUTYRICUM SPORES STRAIN M-55

REACTIONS (4)
  - Blood bilirubin increased [Recovering/Resolving]
  - Anaemia [Recovering/Resolving]
  - Renal impairment [Not Recovered/Not Resolved]
  - Hepatic function abnormal [Recovering/Resolving]

NARRATIVE: CASE EVENT DATE: 20171208
